FAERS Safety Report 14968121 (Version 3)
Quarter: 2019Q1

REPORT INFORMATION
  Report Type: Spontaneous
  Country: GB (occurrence: GB)
  Receive Date: 20180604
  Receipt Date: 20190101
  Transmission Date: 20190417
  Serious: Yes (Death, Hospitalization, Other)
  Sender: FDA-Public Use
  Company Number: GB-ACCORD-067663

PATIENT
  Age: 44 Year
  Sex: Female
  Weight: 114 kg

DRUGS (12)
  1. TRIHEXYPHENIDYL [Suspect]
     Active Substance: TRIHEXYPHENIDYL
     Indication: SALIVARY HYPERSECRETION
     Dosage: 2 MG, UNK
     Route: 048
     Dates: start: 2011
  2. BECLOMETASONE [Concomitant]
     Active Substance: BECLOMETHASONE DIPROPIONATE
     Indication: CHRONIC OBSTRUCTIVE PULMONARY DISEASE
     Dosage: 50 MG, BID?DOSE 100 MG
  3. OMEPRAZOLE. [Concomitant]
     Active Substance: OMEPRAZOLE
     Indication: ABDOMINAL DISCOMFORT
     Dosage: 20 MG, UNK
     Route: 048
  4. ARIPIPRAZOLE. [Suspect]
     Active Substance: ARIPIPRAZOLE
     Indication: SCHIZOPHRENIA
     Dosage: 10 MG, UNK
     Route: 048
     Dates: start: 2007
  5. VENTOLIN [Concomitant]
     Active Substance: ALBUTEROL SULFATE
     Indication: CHRONIC OBSTRUCTIVE PULMONARY DISEASE
     Dosage: 100 MG, BID?DOSE 200 MG
  6. METFORMIN [Concomitant]
     Active Substance: METFORMIN HYDROCHLORIDE
     Indication: TYPE 2 DIABETES MELLITUS
     Dosage: UNK, QD
     Route: 048
  7. CLOZARIL [Suspect]
     Active Substance: CLOZAPINE
     Indication: SCHIZOPHRENIA
     Dosage: 550 MG, UNK,ALSO EXPERIANCED IN 01-JAN-2006
     Route: 048
     Dates: start: 20061120
  8. PIOGLITAZONE/PIOGLITAZONE HYDROCHLORIDE [Concomitant]
     Indication: TYPE 2 DIABETES MELLITUS
     Dosage: 45 MG, QD
     Route: 048
  9. ASPIRIN. [Concomitant]
     Active Substance: ASPIRIN
     Indication: PRODUCT USED FOR UNKNOWN INDICATION
     Dosage: 75 MG, UNK,DISPERSIBLE TABLET
     Route: 048
  10. BEZAFIBRATE [Concomitant]
     Active Substance: BEZAFIBRATE
     Indication: HYPERCHOLESTEROLAEMIA
     Dosage: 400 MG, UNK
     Route: 048
  11. IRBESARTAN. [Concomitant]
     Active Substance: IRBESARTAN
     Indication: HYPERTENSION
     Dosage: 150 MG, UNK
     Route: 048
  12. DOCUSATE [Concomitant]
     Active Substance: DOCUSATE
     Indication: CONSTIPATION
     Dosage: 200 MG, BID?DOSE 400 MG
     Route: 048

REACTIONS (7)
  - Salivary hypersecretion [Fatal]
  - Peritonitis [Fatal]
  - Haematemesis [Fatal]
  - Unresponsive to stimuli [Fatal]
  - Constipation [Fatal]
  - Diverticular perforation [Fatal]
  - Gastric disorder [Fatal]

NARRATIVE: CASE EVENT DATE: 2011
